FAERS Safety Report 4611166-2 (Version None)
Quarter: 2005Q1

REPORT INFORMATION
  Report Type: 
  Country: None (occurrence: None)
  Receive Date: 20050315
  Receipt Date: 20050315
  Transmission Date: 20050727
  Serious: Yes (Life-Threatening)
  Sender: FDA-Public Use
  Company Number: None

PATIENT
  Sex: Male
  Weight: 16.3295 kg

DRUGS (1)
  1. CARBAMAZEPINE [Suspect]
     Dosage: 2.5ML PO TID
     Route: 048
     Dates: start: 20041106, end: 20050223

REACTIONS (6)
  - ASTHENIA [None]
  - DRUG TOXICITY [None]
  - DYSSTASIA [None]
  - EYE ROLLING [None]
  - GASTROENTERITIS [None]
  - VOMITING [None]
